FAERS Safety Report 8936831 (Version 1)
Quarter: 2012Q4

REPORT INFORMATION
  Report Type: 
  Country: FR (occurrence: FR)
  Receive Date: 20121130
  Receipt Date: 20121130
  Transmission Date: 20130627
  Serious: Yes (Other)
  Sender: FDA-Public Use
  Company Number: FR-ASTRAZENECA-2012SE88920

PATIENT
  Age: 21216 Day
  Sex: Male

DRUGS (1)
  1. CRESTOR [Suspect]
     Indication: DYSLIPIDAEMIA
     Route: 048
     Dates: start: 201208, end: 201211

REACTIONS (2)
  - Blood creatine phosphokinase increased [Recovered/Resolved]
  - Hepatocellular injury [Recovered/Resolved]
